FAERS Safety Report 5316005-2 (Version None)
Quarter: 2007Q2

REPORT INFORMATION
  Report Type: 
  Country: None (occurrence: None)
  Receive Date: 20070503
  Receipt Date: 20070420
  Transmission Date: 20071010
  Serious: Yes (Other)
  Sender: FDA-Public Use
  Company Number: JP-ROCHE-491223

PATIENT
  Age: 13 Year
  Sex: Male
  Weight: 55 kg

DRUGS (4)
  1. TAMIFLU [Suspect]
     Route: 048
     Dates: start: 20070313, end: 20070313
  2. HUSTAZOL [Concomitant]
     Route: 048
     Dates: start: 20070313, end: 20070317
  3. MECLOCELIN [Concomitant]
     Route: 048
     Dates: start: 20070313, end: 20070317
  4. IBUPROFEN [Concomitant]
     Route: 048
     Dates: start: 20070313

REACTIONS (1)
  - ABNORMAL BEHAVIOUR [None]
